FAERS Safety Report 4398701-7 (Version None)
Quarter: 2004Q3

REPORT INFORMATION
  Report Type: 
  Country: None (occurrence: None)
  Receive Date: 20040712
  Receipt Date: 20040629
  Transmission Date: 20050211
  Serious: Yes (Hospitalization)
  Sender: FDA-Public Use
  Company Number: 04P-028-0254537-00

PATIENT
  Age: 78 Year
  Sex: Female

DRUGS (5)
  1. BIAXIN [Suspect]
     Indication: UPPER RESPIRATORY TRACT INFECTION
     Dosage: 250 MG, 2 IN 1 D, PER ORAL
     Route: 048
     Dates: start: 20040316
  2. L-THYROXINE [Concomitant]
  3. OMEPRAZOLE [Concomitant]
  4. ACEBUTOLOL HYDROCHLORIDE [Concomitant]
  5. DOMPERIDONE [Concomitant]

REACTIONS (6)
  - ACTIVATED PARTIAL THROMBOPLASTIN TIME PROLONGED [None]
  - CONTUSION [None]
  - EYE HAEMORRHAGE [None]
  - HAEMORRHAGE [None]
  - INTERNATIONAL NORMALISED RATIO INCREASED [None]
  - SKIN LACERATION [None]
